FAERS Safety Report 5333914-9 (Version None)
Quarter: 2007Q2

REPORT INFORMATION
  Report Type: 
  Country: None (occurrence: None)
  Receive Date: 20070524
  Receipt Date: 20070516
  Transmission Date: 20071010
  Serious: Yes (Life-Threatening, Hospitalization, Disabling)
  Sender: FDA-Public Use
  Company Number: HQWYE320102APR07

PATIENT
  Sex: Male
  Weight: 3.38 kg

DRUGS (10)
  1. BENEFIX [Suspect]
     Indication: FACTOR IX DEFICIENCY
     Dosage: BOLUS INFUSIONS UP TO 86 IU/KG EVERY 12 HOURS (CUMULATIVE DOSE 1118 UNITS/KG)
     Route: 040
     Dates: start: 20070215, end: 20070222
  2. BENEFIX [Suspect]
     Dosage: 150 UNITS/KG LOADING DOSE
     Dates: start: 20070222
  3. BENEFIX [Suspect]
     Dosage: 20 UNIT/KG/HR CONTINOUS INFUSION
     Route: 042
     Dates: start: 20070201
  4. BENEFIX [Suspect]
     Dosage: 26-27 U/KG/HR , ACHIEVED LEVELS OF 80-140%
     Dates: start: 20070201, end: 20070312
  5. MIDAZOLAM HCL [Concomitant]
     Dosage: 0.32 MG EVERY 4 HOURS PRN
     Route: 042
     Dates: start: 20070222
  6. MORPHINE [Concomitant]
     Indication: PAIN
     Dosage: NOT REPORTED
  7. POLYVITAMIN [Concomitant]
     Route: 048
     Dates: start: 20070309
  8. HEPARIN [Concomitant]
     Indication: CENTRAL VENOUS CATHETERISATION
     Dosage: 3 UNITS/3 ML SYRINGE PRN
     Route: 042
     Dates: start: 20070222
  9. HEPARIN [Concomitant]
     Dosage: 10 UNITS/ML
     Route: 042
     Dates: start: 20070222
  10. ACETAMINOPHEN [Concomitant]
     Indication: PAIN
     Dosage: 50 MG EVERY 6 HOURS PRN
     Route: 048
     Dates: start: 20070309

REACTIONS (6)
  - CHYLOTHORAX [None]
  - CONVULSION [None]
  - DISSEMINATED INTRAVASCULAR COAGULATION [None]
  - EYE MOVEMENT DISORDER [None]
  - INJECTION SITE THROMBOSIS [None]
  - SUPERIOR VENA CAVAL OCCLUSION [None]
